FAERS Safety Report 5115604-0 (Version None)
Quarter: 2006Q3

REPORT INFORMATION
  Report Type: 
  Country: None (occurrence: None)
  Receive Date: 20060925
  Receipt Date: 20060911
  Transmission Date: 20061208
  Serious: Yes (Other)
  Sender: FDA-Public Use
  Company Number: 2006110397

PATIENT
  Age: 4 Month
  Sex: Male
  Weight: 6.804 kg

DRUGS (4)
  1. BENADRYL [Suspect]
     Dosage: 1/4 TSP EVERY 4-6 HOURS, ORAL
     Route: 048
     Dates: start: 20060901
  2. PEDIALYTE (ELECTROLYTES NOS, GLUCOSE [Concomitant]
  3. BENZOCAINE (BENZOCAINE) [Concomitant]
  4. ACETAMINOPHEN [Concomitant]

REACTIONS (3)
  - DEPRESSED LEVEL OF CONSCIOUSNESS [None]
  - EYES SUNKEN [None]
  - INCOHERENT [None]
